FAERS Safety Report 12419520 (Version 1)
Quarter: 2016Q2

REPORT INFORMATION
  Report Type: Spontaneous
  Country: JP (occurrence: JP)
  Receive Date: 20160531
  Receipt Date: 20160531
  Transmission Date: 20160815
  Serious: Yes (Hospitalization)
  Sender: FDA-Public Use
  Company Number: JP-PFIZER INC-2016270401

PATIENT
  Age: 18 Year
  Sex: Male

DRUGS (1)
  1. VIBRAMYCIN [Suspect]
     Active Substance: DOXYCYCLINE
     Indication: ACNE
     Dosage: 2 DF, 2X/DAY
     Route: 048
     Dates: start: 20160510, end: 20160516

REACTIONS (4)
  - Abdominal pain [Unknown]
  - Hepatic function abnormal [Unknown]
  - Malaise [Unknown]
  - Vomiting [Unknown]

NARRATIVE: CASE EVENT DATE: 201605
